FAERS Safety Report 4900615-8 (Version None)
Quarter: 2006Q1

REPORT INFORMATION
  Report Type: 
  Country: None (occurrence: None)
  Receive Date: 20060203
  Receipt Date: 20060201
  Transmission Date: 20060701
  Serious: Yes (Death)
  Sender: FDA-Public Use
  Company Number: 2006AP00534

PATIENT
  Age: 81 Year
  Sex: Female

DRUGS (13)
  1. MEROPENEM [Suspect]
     Indication: AGRANULOCYTOSIS
     Route: 042
     Dates: start: 20041211, end: 20041214
  2. ALLOPURINOL [Suspect]
  3. SODIUM BICARBONATE [Concomitant]
  4. GABAPENTIN [Concomitant]
  5. PARACETAMOL [Concomitant]
  6. MORPHINE [Concomitant]
  7. COLCHICINE [Concomitant]
  8. RAMIPRIL [Concomitant]
  9. POTASSIUM CHLORIDE BICARBONATE [Concomitant]
  10. FRUSEMIDE [Concomitant]
  11. THYROXINE [Concomitant]
  12. DIGOXIN [Concomitant]
  13. NYSTATIN [Concomitant]

REACTIONS (1)
  - HEPATIC FAILURE [None]
